FAERS Safety Report 9244395 (Version 1)
Quarter: 2013Q2

REPORT INFORMATION
  Report Type: Spontaneous
  Country: US (occurrence: US)
  Receive Date: 20130422
  Receipt Date: 20130422
  Transmission Date: 20140414
  Serious: Yes (Other)
  Sender: FDA-Public Use
  Company Number: PHEH2013US008523

PATIENT
  Sex: 0

DRUGS (1)
  1. ZORTRESS [Suspect]
     Dosage: UNK UKN, UNK

REACTIONS (1)
  - Type III immune complex mediated reaction [Unknown]
